FAERS Safety Report 4948412-1 (Version None)
Quarter: 2006Q1

REPORT INFORMATION
  Report Type: 
  Country: None (occurrence: None)
  Receive Date: 20060313
  Receipt Date: 20060214
  Transmission Date: 20060701
  Serious: Yes (Hospitalization)
  Sender: FDA-Public Use
  Company Number: RENA-11643

PATIENT
  Age: 48 Year
  Sex: Female
  Weight: 41.1 kg

DRUGS (15)
  1. RENAGEL [Suspect]
     Indication: HYPERPHOSPHATAEMIA
     Dosage: 2 G TID PO
     Route: 048
     Dates: start: 20040802
  2. LOXONIN [Suspect]
     Dosage: 60 MG PRN
     Dates: start: 20040825, end: 20050525
  3. ALLOPURINOL [Concomitant]
  4. DEPAS [Concomitant]
  5. ASPIRIN [Concomitant]
  6. CALTAN (CALCIUM CARBONATE) [Concomitant]
  7. PURSENNID [Concomitant]
  8. MUCOSTA [Concomitant]
  9. TAKEPRON [Concomitant]
  10. OMEPRAL [Concomitant]
  11. SELBEX [Concomitant]
  12. ALLEGRA [Concomitant]
  13. BLUTAL [Concomitant]
  14. OXAROL (MAXACALCITOL) [Concomitant]
  15. EPOGIN [Concomitant]

REACTIONS (7)
  - ANAEMIA [None]
  - BLOOD PRESSURE DECREASED [None]
  - GASTRIC ULCER HAEMORRHAGE [None]
  - GENERAL PHYSICAL HEALTH DETERIORATION [None]
  - HELICOBACTER INFECTION [None]
  - SCAR [None]
  - STRESS [None]
